FAERS Safety Report 22332630 (Version 1)
Quarter: 2023Q2

REPORT INFORMATION
  Report Type: Spontaneous
  Country: US (occurrence: US)
  Receive Date: 20230517
  Receipt Date: 20230517
  Transmission Date: 20230722
  Serious: Yes (Death)
  Sender: FDA-Public Use
  Company Number: US-ORPHANEU-2019000661

PATIENT

DRUGS (1)
  1. CYSTADANE [Suspect]
     Active Substance: BETAINE
     Indication: Homocystinuria
     Dosage: 9 G, BID
     Route: 048

REACTIONS (3)
  - Alopecia [Recovered/Resolved]
  - Urinary incontinence [Recovered/Resolved]
  - Accident [Fatal]

NARRATIVE: CASE EVENT DATE: 20190501
